FAERS Safety Report 20940346 (Version 1)
Quarter: 2022Q2

REPORT INFORMATION
  Report Type: Spontaneous
  Country: US (occurrence: US)
  Receive Date: 20220609
  Receipt Date: 20220609
  Transmission Date: 20220721
  Serious: No
  Sender: FDA-Public Use
  Company Number: US-RIGEL PHARMACEUTICALS, INC.-2021FOS000788

PATIENT
  Sex: Male

DRUGS (1)
  1. TAVALISSE [Suspect]
     Active Substance: FOSTAMATINIB
     Indication: Thrombocytopenia
     Dosage: 100 MG, BID
     Route: 048
     Dates: start: 20210209

REACTIONS (6)
  - Skin cancer [Unknown]
  - Infection [Unknown]
  - Skin discolouration [Unknown]
  - Oedema peripheral [Unknown]
  - Off label use [Unknown]
  - Rash [Unknown]

NARRATIVE: CASE EVENT DATE: 20210101
